FAERS Safety Report 4435589-X (Version None)
Quarter: 2004Q3

REPORT INFORMATION
  Report Type: 
  Country: None (occurrence: None)
  Receive Date: 20040726
  Receipt Date: 20040510
  Transmission Date: 20050211
  Serious: No
  Sender: FDA-Public Use
  Company Number: USA040567139

PATIENT
  Age: 79 Year
  Sex: Female
  Weight: 81 kg

DRUGS (1)
  1. FORTEO [Suspect]
     Indication: COMPRESSION FRACTURE
     Dosage: UNK
     Dates: start: 20040405

REACTIONS (2)
  - INJECTION SITE ERYTHEMA [None]
  - INJECTION SITE PAIN [None]
